FAERS Safety Report 9426698 (Version 1)
Quarter: 2013Q3

REPORT INFORMATION
  Report Type: Spontaneous
  Country: US (occurrence: US)
  Receive Date: 20130730
  Receipt Date: 20130730
  Transmission Date: 20140515
  Serious: No
  Sender: FDA-Public Use
  Company Number: US-SANOFI-AVENTIS-2012SA063996

PATIENT
  Sex: Female

DRUGS (1)
  1. ZOLPIDEM TARTRATE [Suspect]
     Indication: SLEEP DISORDER
     Dosage: SHE ONLY USES ^1/2^ OF A 10 MG TABLET.
     Route: 048
     Dates: start: 2011

REACTIONS (8)
  - Abnormal dreams [Unknown]
  - Feeling abnormal [Unknown]
  - Abnormal sleep-related event [Unknown]
  - Dependence [Unknown]
  - Wrong technique in drug usage process [Unknown]
  - Incorrect drug administration duration [Unknown]
  - Intentional drug misuse [Unknown]
  - Therapeutic response increased [Unknown]
